FAERS Safety Report 11328612 (Version 1)
Quarter: 2015Q3

REPORT INFORMATION
  Report Type: Spontaneous
  Country: CA (occurrence: CA)
  Receive Date: 20150731
  Receipt Date: 20150731
  Transmission Date: 20151125
  Serious: Yes (Other)
  Sender: FDA-Public Use
  Company Number: KH-ASTRAZENECA-2015SE72857

PATIENT
  Age: 56 Year
  Sex: Male

DRUGS (12)
  1. BUDESONIDE/FORMOTEROL FUMARATE [Concomitant]
     Active Substance: BUDESONIDE\FORMOTEROL
  2. CALCIUM [Concomitant]
     Active Substance: CALCIUM
  3. THEOPHYLLINE [Concomitant]
     Active Substance: THEOPHYLLINE ANHYDROUS
  4. DAXAS [Suspect]
     Active Substance: ROFLUMILAST
     Indication: PRODUCT USED FOR UNKNOWN INDICATION
     Route: 048
  5. ACLASTA [Suspect]
     Active Substance: ZOLEDRONIC ACID
     Indication: OSTEOPOROSIS
     Route: 042
  6. SINGULAIR [Suspect]
     Active Substance: MONTELUKAST SODIUM
     Indication: PRODUCT USED FOR UNKNOWN INDICATION
     Route: 065
  7. ERGOCALCIFEROL. [Concomitant]
     Active Substance: ERGOCALCIFEROL
  8. INDACATEROL MALEATE [Concomitant]
     Active Substance: INDACATEROL MALEATE
  9. RAMIPRIL. [Concomitant]
     Active Substance: RAMIPRIL
  10. VITAMIN B12 [Concomitant]
     Active Substance: CYANOCOBALAMIN
  11. ACLIDINIUM BROMIDE [Concomitant]
     Active Substance: ACLIDINIUM BROMIDE
  12. OXYCODONE [Concomitant]
     Active Substance: OXYCODONE

REACTIONS (17)
  - Bone density decreased [Recovered/Resolved]
  - Creatinine renal clearance increased [Recovered/Resolved]
  - Drug intolerance [Recovered/Resolved]
  - Lumbar vertebral fracture [Recovered/Resolved]
  - Osteoarthritis [Recovered/Resolved]
  - Vitamin D decreased [Recovered/Resolved]
  - Blood pressure increased [Recovered/Resolved]
  - Aortic arteriosclerosis [Recovered/Resolved]
  - Chest discomfort [Recovered/Resolved]
  - Lordosis [Recovered/Resolved]
  - Osteoporosis [Recovered/Resolved]
  - Osteoporotic fracture [Recovered/Resolved]
  - Inappropriate schedule of drug administration [Recovered/Resolved]
  - Vitamin D increased [Recovered/Resolved]
  - Compression fracture [Recovered/Resolved]
  - Kyphosis [Recovered/Resolved]
  - Rib fracture [Recovered/Resolved]
